FAERS Safety Report 11167567 (Version 2)
Quarter: 2015Q3

REPORT INFORMATION
  Report Type: Report from Study
  Country: US (occurrence: None)
  Receive Date: 20150603
  Receipt Date: 20150724
  Transmission Date: 20151125
  Serious: No
  Sender: FDA-Public Use
  Company Number: KAD201506-001417

PATIENT
  Age: 64 Year
  Sex: Male
  Weight: 79.37 kg

DRUGS (12)
  1. ATORVASTATIN (ATORVASTATIN) (ATORVASTATIN) [Concomitant]
     Active Substance: ATORVASTATIN
  2. AFRIN (OXYMETAZOLINE HYDROCHLORIDE) [Concomitant]
  3. SYNTHROID (LEVOTHYROXINE SODIUM) (LEVOTHYROXINE SODIUM) [Concomitant]
  4. FLONASE [Concomitant]
     Active Substance: FLUTICASONE PROPIONATE
  5. FINASTERIDE. [Concomitant]
     Active Substance: FINASTERIDE
  6. VITAMIN E (TOCOPHEROL) (TOCOPHEROL) [Concomitant]
  7. ASPIRIN (ACETYLSALICYLIC ACID) (ACETYLSALICYLIC ACID) [Concomitant]
     Active Substance: ASPIRIN
  8. RIBAVIRIN. [Suspect]
     Active Substance: RIBAVIRIN
     Indication: HEPATITIS C
     Dosage: TABLET, ONE IN ONE DAY, ORAL
     Route: 048
     Dates: start: 20150518, end: 20150523
  9. SINGULAIR (MONTELUKAST SODIUM) (MONTELUKAST SODIUM) [Concomitant]
  10. FOLIC ACID. [Concomitant]
     Active Substance: FOLIC ACID
  11. VIEKIRA PAK [Suspect]
     Active Substance: DASABUVIR\OMBITASVIR\PARITAPREVIR\RITONAVIR
     Indication: HEPATITIS C
     Dosage: TABLET, ONE IN ONE DAY, ORAL
     Route: 048
     Dates: start: 20150518, end: 20150523
  12. LIPITOR [Concomitant]
     Active Substance: ATORVASTATIN CALCIUM

REACTIONS (5)
  - Skin discolouration [None]
  - Hyperbilirubinaemia [None]
  - Chromaturia [None]
  - Mental impairment [None]
  - Blood bilirubin increased [None]

NARRATIVE: CASE EVENT DATE: 20150523
